FAERS Safety Report 6672454-1 (Version None)
Quarter: 2010Q2

REPORT INFORMATION
  Report Type: 
  Country: None (occurrence: None)
  Receive Date: 20100408
  Receipt Date: 20100308
  Transmission Date: 20101027
  Serious: No
  Sender: FDA-Public Use
  Company Number: US-BAYER-201012912BCC

PATIENT
  Age: 76 Year
  Sex: Female
  Weight: 82 kg

DRUGS (8)
  1. ALEVE (CAPLET) [Suspect]
     Indication: ARTHRALGIA
     Dosage: TOTAL DAILY DOSE: 220 MG  UNIT DOSE: 220 MG
     Route: 048
     Dates: start: 20100201
  2. TRIAMTERENE [Concomitant]
     Route: 065
  3. SIVASTIN [Concomitant]
     Route: 065
  4. CALCIUM SUPPLEMENT [Concomitant]
     Route: 065
  5. MULTIVITAMIN [Concomitant]
     Route: 065
  6. ALLOPURINOL [Concomitant]
     Route: 065
  7. FEMARA [Concomitant]
     Route: 065
  8. ACUTRIM [Concomitant]
     Route: 065

REACTIONS (1)
  - HEART RATE INCREASED [None]
